FAERS Safety Report 7903644-5 (Version None)
Quarter: 2011Q4

REPORT INFORMATION
  Report Type: 
  Country: None (occurrence: None)
  Receive Date: 20111109
  Receipt Date: 20111103
  Transmission Date: 20120403
  Serious: Yes (Hospitalization, Disabling)
  Sender: FDA-Public Use
  Company Number: GB-SANOFI-AVENTIS-2011SA072651

PATIENT
  Age: 47 Year
  Sex: Female
  Weight: 89 kg

DRUGS (11)
  1. ASPIRIN [Concomitant]
     Indication: ATRIAL FIBRILLATION
     Dates: start: 20110801
  2. DIGOXIN [Concomitant]
     Dates: start: 20110801
  3. RAMIPRIL [Concomitant]
     Dates: start: 20110601
  4. SPIRONOLACTONE [Concomitant]
     Dates: start: 20110601
  5. ZOLPIDEM [Concomitant]
     Dates: start: 20110801
  6. ENOXAPARIN SODIUM [Suspect]
     Indication: THROMBOSIS PROPHYLAXIS
     Route: 058
     Dates: start: 20110614
  7. WARFARIN SODIUM [Concomitant]
     Indication: PROPHYLAXIS
     Dates: start: 20110601, end: 20110701
  8. OMEPRAZOLE [Concomitant]
     Dates: start: 20110801
  9. FERROUS SULFATE TAB [Concomitant]
     Dates: start: 20010801
  10. FUROSEMIDE [Concomitant]
     Dates: start: 20110601
  11. BISOPROLOL [Concomitant]
     Dates: start: 20110601

REACTIONS (8)
  - HYPOTENSION [None]
  - WOUND COMPLICATION [None]
  - SOFT TISSUE NECROSIS [None]
  - SUBCUTANEOUS HAEMATOMA [None]
  - CIRCULATORY COLLAPSE [None]
  - ABDOMINAL PAIN [None]
  - INTERNATIONAL NORMALISED RATIO INCREASED [None]
  - SKIN ODOUR ABNORMAL [None]
